FAERS Safety Report 18317020 (Version 1)
Quarter: 2020Q3

REPORT INFORMATION
  Report Type: Spontaneous
  Country: US (occurrence: US)
  Receive Date: 20200928
  Receipt Date: 20200928
  Transmission Date: 20201103
  Serious: Yes (Hospitalization, Other)
  Sender: FDA-Public Use
  Company Number: US-DECIPHERA PHARMACEUTICALS LLC-2020-US-000442

PATIENT
  Age: 68 Year
  Sex: Female

DRUGS (1)
  1. QINLOCK [Suspect]
     Active Substance: RIPRETINIB
     Indication: GASTROINTESTINAL STROMAL TUMOUR
     Dosage: 150 MILLIGRAM QD
     Route: 048
     Dates: start: 20200907

REACTIONS (8)
  - Palpitations [Unknown]
  - Product dose omission issue [Recovered/Resolved]
  - Chest discomfort [Unknown]
  - Feeling abnormal [Unknown]
  - Musculoskeletal stiffness [Recovered/Resolved]
  - Gait disturbance [Unknown]
  - Discomfort [Unknown]
  - Heart rate increased [Recovered/Resolved]

NARRATIVE: CASE EVENT DATE: 20200907
